FAERS Safety Report 7145372-2 (Version None)
Quarter: 2010Q4

REPORT INFORMATION
  Report Type: 
  Country: None (occurrence: None)
  Receive Date: 20101208
  Receipt Date: 20101203
  Transmission Date: 20110411
  Serious: Yes (Hospitalization)
  Sender: FDA-Public Use
  Company Number: DE-ROCHE-719932

PATIENT
  Sex: Female
  Weight: 57 kg

DRUGS (14)
  1. CAPECITABINE [Suspect]
     Indication: RECTAL CANCER
     Dosage: FREQUENCY:DAY 1 AND 15 OF 3 WEEK CYCLE. ACTUAL DOSE GIVEN:1500MG. LAST DOSE PRIOR TO SAE: 6 AUG 2010
     Route: 048
     Dates: start: 20100308
  2. CAPECITABINE [Suspect]
     Route: 048
  3. OXALIPLATIN [Suspect]
     Indication: RECTAL CANCER
     Dosage: FREQUENCY: DAY 1 OF 3 WEEKS CYCLE. ACTUAL DOSE RECEIVED:211MG. LAST DOSE PRIOR TO SAE: 26 JUL 2010
     Route: 042
     Dates: start: 20100308
  4. OXALIPLATIN [Suspect]
     Route: 042
  5. PANTOPRAZOLE SODIUM [Concomitant]
     Indication: UNEVALUABLE EVENT
     Dosage: SCHEDULE REPORTED AS 20G- 0 -20G
     Route: 048
     Dates: start: 20100729, end: 20100806
  6. VERGENTAN [Concomitant]
     Indication: NAUSEA
     Dosage: SCHEDULE REPORTED AS 2X1
     Route: 048
     Dates: start: 20100729, end: 20100806
  7. DEXA [Concomitant]
     Indication: NAUSEA
     Route: 048
     Dates: start: 20100730, end: 20100803
  8. MCP [Concomitant]
     Indication: NAUSEA
     Dosage: DOSE REPORTED AS 3X5 MG
     Route: 048
     Dates: start: 20100728
  9. ENALAPRIL [Concomitant]
     Indication: HYPERTENSION
     Dosage: ONCE  A DAY
     Route: 048
     Dates: start: 20100806
  10. METOPROLOL [Concomitant]
     Indication: HYPERTENSION
     Route: 048
     Dates: start: 20100806
  11. ENABETA [Concomitant]
     Indication: HYPERTENSION
     Route: 048
  12. HYDROCORTISONE [Concomitant]
     Route: 048
     Dates: start: 20100904, end: 20100909
  13. METOPROLOL [Concomitant]
     Route: 048
  14. OMEP [Concomitant]
     Route: 048

REACTIONS (4)
  - ABDOMINAL ADHESIONS [None]
  - ILEUS [None]
  - INTESTINAL DILATATION [None]
  - INTESTINAL OBSTRUCTION [None]
